FAERS Safety Report 11181734 (Version 3)
Quarter: 2016Q1

REPORT INFORMATION
  Report Type: Spontaneous
  Country: US (occurrence: US)
  Receive Date: 20150611
  Receipt Date: 20160308
  Transmission Date: 20160525
  Serious: Yes (Other)
  Sender: FDA-Public Use
  Company Number: US-ASTELLAS-2015US007705

PATIENT
  Age: 71 Year
  Sex: Male

DRUGS (2)
  1. CASODEX [Suspect]
     Active Substance: BICALUTAMIDE
     Indication: PRODUCT USED FOR UNKNOWN INDICATION
     Dosage: UNK, UNKNOWN FREQ.
     Route: 065
  2. XTANDI [Suspect]
     Active Substance: ENZALUTAMIDE
     Indication: PROSTATE CANCER
     Dosage: 160 MG (04 CAPSULES), ONCE DAILY
     Route: 048
     Dates: start: 20141231

REACTIONS (7)
  - Malignant neoplasm progression [Recovering/Resolving]
  - Flatulence [Unknown]
  - Chest discomfort [Recovering/Resolving]
  - Muscular weakness [Recovering/Resolving]
  - Prostatic specific antigen abnormal [Unknown]
  - Eructation [Unknown]
  - Muscular weakness [Unknown]

NARRATIVE: CASE EVENT DATE: 20150307
